FAERS Safety Report 23418802 (Version 1)
Quarter: 2024Q1

REPORT INFORMATION
  Report Type: Spontaneous
  Country: US (occurrence: None)
  Receive Date: 20240118
  Receipt Date: 20240118
  Transmission Date: 20240409
  Serious: Yes (unspecified)
  Sender: FDA-Public Use
  Company Number: None

PATIENT
  Age: 16 Year
  Sex: Female
  Weight: 54 kg

DRUGS (1)
  1. ZYPREXA [Suspect]
     Active Substance: OLANZAPINE

REACTIONS (7)
  - Suicidal ideation [None]
  - Intrusive thoughts [None]
  - Affect lability [None]
  - Swelling face [None]
  - Weight increased [None]
  - Somnolence [None]
  - Visual impairment [None]
